FAERS Safety Report 26209572 (Version 1)
Quarter: 2025Q4

REPORT INFORMATION
  Report Type: Spontaneous
  Country: EU (occurrence: EU)
  Receive Date: 20251229
  Receipt Date: 20251229
  Transmission Date: 20260117
  Serious: Yes (Hospitalization)
  Sender: MYLAN
  Company Number: EU-PROCTER+GAMBLE-PH25021201

PATIENT
  Age: 40 Year
  Sex: Female
  Weight: 40 kg

DRUGS (44)
  1. SERTRALINE [Suspect]
     Active Substance: SERTRALINE HYDROCHLORIDE
     Indication: Product used for unknown indication
     Dosage: 150 MILLIGRAM, 150 MILLIGRAM,  (MIX-UP), ORAL, CERTAIN EXPOSURE
     Route: 061
  2. SERTRALINE [Suspect]
     Active Substance: SERTRALINE HYDROCHLORIDE
     Dosage: 150 MILLIGRAM, 150 MILLIGRAM,  (MIX-UP), ORAL, CERTAIN EXPOSURE
     Route: 048
  3. SERTRALINE [Suspect]
     Active Substance: SERTRALINE HYDROCHLORIDE
     Dosage: 150 MILLIGRAM, 150 MILLIGRAM,  (MIX-UP), ORAL, CERTAIN EXPOSURE
     Route: 048
  4. SERTRALINE [Suspect]
     Active Substance: SERTRALINE HYDROCHLORIDE
     Dosage: 150 MILLIGRAM, 150 MILLIGRAM,  (MIX-UP), ORAL, CERTAIN EXPOSURE
     Route: 061
  5. METOPROLOL [Suspect]
     Active Substance: METOPROLOL
     Indication: Product used for unknown indication
     Dosage: 1 DOSAGE FORM, 1 TABLET  (MIX-UP), ORAL, CERTAIN EXPOSURE-METOPROLOL 50
     Route: 061
  6. METOPROLOL [Suspect]
     Active Substance: METOPROLOL
     Dosage: 1 DOSAGE FORM, 1 TABLET  (MIX-UP), ORAL, CERTAIN EXPOSURE-METOPROLOL 50
     Route: 048
  7. METOPROLOL [Suspect]
     Active Substance: METOPROLOL
     Dosage: 1 DOSAGE FORM, 1 TABLET  (MIX-UP), ORAL, CERTAIN EXPOSURE-METOPROLOL 50
     Route: 048
  8. METOPROLOL [Suspect]
     Active Substance: METOPROLOL
     Dosage: 1 DOSAGE FORM, 1 TABLET  (MIX-UP), ORAL, CERTAIN EXPOSURE-METOPROLOL 50
     Route: 061
  9. RISPERIDONE [Suspect]
     Active Substance: RISPERIDONE
     Indication: Product used for unknown indication
     Dosage: 1 DOSAGE FORM, 1 TABLET  (MIX-UP), ORAL, CERTAIN EXPOSURE - RISPERIDONE 0.5 MG
     Route: 061
  10. RISPERIDONE [Suspect]
     Active Substance: RISPERIDONE
     Dosage: 1 DOSAGE FORM, 1 TABLET  (MIX-UP), ORAL, CERTAIN EXPOSURE - RISPERIDONE 0.5 MG
     Route: 048
  11. RISPERIDONE [Suspect]
     Active Substance: RISPERIDONE
     Dosage: 1 DOSAGE FORM, 1 TABLET  (MIX-UP), ORAL, CERTAIN EXPOSURE - RISPERIDONE 0.5 MG
     Route: 048
  12. RISPERIDONE [Suspect]
     Active Substance: RISPERIDONE
     Dosage: 1 DOSAGE FORM, 1 TABLET  (MIX-UP), ORAL, CERTAIN EXPOSURE - RISPERIDONE 0.5 MG
     Route: 061
  13. LAMOTRIGINE [Suspect]
     Active Substance: LAMOTRIGINE
     Indication: Product used for unknown indication
     Dosage: 150 MILLIGRAM, 150 MILLIGRAM,  (LONG-TERM MEDICATION), ORAL, CERTAIN EXPOSURE
     Route: 061
  14. LAMOTRIGINE [Suspect]
     Active Substance: LAMOTRIGINE
     Dosage: 150 MILLIGRAM, 150 MILLIGRAM,  (LONG-TERM MEDICATION), ORAL, CERTAIN EXPOSURE
     Route: 048
  15. LAMOTRIGINE [Suspect]
     Active Substance: LAMOTRIGINE
     Dosage: 150 MILLIGRAM, 150 MILLIGRAM,  (LONG-TERM MEDICATION), ORAL, CERTAIN EXPOSURE
     Route: 048
  16. LAMOTRIGINE [Suspect]
     Active Substance: LAMOTRIGINE
     Dosage: 150 MILLIGRAM, 150 MILLIGRAM,  (LONG-TERM MEDICATION), ORAL, CERTAIN EXPOSURE
     Route: 061
  17. VALPROATE SODIUM [Suspect]
     Active Substance: VALPROATE SODIUM
     Indication: Product used for unknown indication
     Dosage: 1 DOSAGE FORM, 1 TABLET  (LONG-TERM MEDICATION), ORAL, CERTAIN EXPOSURE-VALPROAT 500 MG
     Route: 061
  18. VALPROATE SODIUM [Suspect]
     Active Substance: VALPROATE SODIUM
     Dosage: 1 DOSAGE FORM, 1 TABLET  (LONG-TERM MEDICATION), ORAL, CERTAIN EXPOSURE-VALPROAT 500 MG
     Route: 048
  19. VALPROATE SODIUM [Suspect]
     Active Substance: VALPROATE SODIUM
     Dosage: 1 DOSAGE FORM, 1 TABLET  (LONG-TERM MEDICATION), ORAL, CERTAIN EXPOSURE-VALPROAT 500 MG
     Route: 048
  20. VALPROATE SODIUM [Suspect]
     Active Substance: VALPROATE SODIUM
     Dosage: 1 DOSAGE FORM, 1 TABLET  (LONG-TERM MEDICATION), ORAL, CERTAIN EXPOSURE-VALPROAT 500 MG
     Route: 061
  21. METFORMIN [Suspect]
     Active Substance: METFORMIN HYDROCHLORIDE
     Indication: Product used for unknown indication
     Dosage: 1 DOSAGE FORM, 1 TABLET (MIX-UP), ORAL, CERTAIN EXPOSURE-METFORMIN 500
     Route: 061
  22. METFORMIN [Suspect]
     Active Substance: METFORMIN HYDROCHLORIDE
     Dosage: 1 DOSAGE FORM, 1 TABLET (MIX-UP), ORAL, CERTAIN EXPOSURE-METFORMIN 500
     Route: 048
  23. METFORMIN [Suspect]
     Active Substance: METFORMIN HYDROCHLORIDE
     Dosage: 1 DOSAGE FORM, 1 TABLET (MIX-UP), ORAL, CERTAIN EXPOSURE-METFORMIN 500
     Route: 048
  24. METFORMIN [Suspect]
     Active Substance: METFORMIN HYDROCHLORIDE
     Dosage: 1 DOSAGE FORM, 1 TABLET (MIX-UP), ORAL, CERTAIN EXPOSURE-METFORMIN 500
     Route: 061
  25. CHOLECALCIFEROL [Suspect]
     Active Substance: CHOLECALCIFEROL
     Indication: Product used for unknown indication
     Dosage: 1 DOSAGE FORM, 1 TABLET, (LONG-TERM MEDICATION), ORAL, CERTAIN EXPOSURE, VITAMIN D3 TABLET
     Route: 061
  26. CHOLECALCIFEROL [Suspect]
     Active Substance: CHOLECALCIFEROL
     Dosage: 1 DOSAGE FORM, 1 TABLET, (LONG-TERM MEDICATION), ORAL, CERTAIN EXPOSURE, VITAMIN D3 TABLET
     Route: 048
  27. CHOLECALCIFEROL [Suspect]
     Active Substance: CHOLECALCIFEROL
     Dosage: 1 DOSAGE FORM, 1 TABLET, (LONG-TERM MEDICATION), ORAL, CERTAIN EXPOSURE, VITAMIN D3 TABLET
     Route: 048
  28. CHOLECALCIFEROL [Suspect]
     Active Substance: CHOLECALCIFEROL
     Dosage: 1 DOSAGE FORM, 1 TABLET, (LONG-TERM MEDICATION), ORAL, CERTAIN EXPOSURE, VITAMIN D3 TABLET
     Route: 061
  29. JARDIANCE [Suspect]
     Active Substance: EMPAGLIFLOZIN
     Indication: Product used for unknown indication
     Dosage: 1 DOSAGE FORM, 1 TABLET  (MIX-UP), ORAL, CERTAIN EXPOSURE-JARDIANCE 10
     Route: 061
  30. JARDIANCE [Suspect]
     Active Substance: EMPAGLIFLOZIN
     Dosage: 1 DOSAGE FORM, 1 TABLET  (MIX-UP), ORAL, CERTAIN EXPOSURE-JARDIANCE 10
     Route: 048
  31. JARDIANCE [Suspect]
     Active Substance: EMPAGLIFLOZIN
     Dosage: 1 DOSAGE FORM, 1 TABLET  (MIX-UP), ORAL, CERTAIN EXPOSURE-JARDIANCE 10
     Route: 048
  32. JARDIANCE [Suspect]
     Active Substance: EMPAGLIFLOZIN
     Dosage: 1 DOSAGE FORM, 1 TABLET  (MIX-UP), ORAL, CERTAIN EXPOSURE-JARDIANCE 10
     Route: 061
  33. FUROSEMIDE [Suspect]
     Active Substance: FUROSEMIDE
     Indication: Product used for unknown indication
     Dosage: 1 DOSAGE FORM, 1 TABLET (MIX-UP), ORAL, CERTAIN EXPOSURE-FUROSEMIDE 40
     Route: 061
  34. FUROSEMIDE [Suspect]
     Active Substance: FUROSEMIDE
     Dosage: 1 DOSAGE FORM, 1 TABLET (MIX-UP), ORAL, CERTAIN EXPOSURE-FUROSEMIDE 40
     Route: 048
  35. FUROSEMIDE [Suspect]
     Active Substance: FUROSEMIDE
     Dosage: 1 DOSAGE FORM, 1 TABLET (MIX-UP), ORAL, CERTAIN EXPOSURE-FUROSEMIDE 40
     Route: 048
  36. FUROSEMIDE [Suspect]
     Active Substance: FUROSEMIDE
     Dosage: 1 DOSAGE FORM, 1 TABLET (MIX-UP), ORAL, CERTAIN EXPOSURE-FUROSEMIDE 40
     Route: 061
  37. LISINOPRIL [Suspect]
     Active Substance: LISINOPRIL
     Indication: Product used for unknown indication
     Dosage: 1 DOSAGE FORM, 1 TABLET  (MIX-UP), ORAL, CERTAIN EXPOSURE-LISINOPRIL 5
     Route: 061
  38. LISINOPRIL [Suspect]
     Active Substance: LISINOPRIL
     Dosage: 1 DOSAGE FORM, 1 TABLET  (MIX-UP), ORAL, CERTAIN EXPOSURE-LISINOPRIL 5
     Route: 048
  39. LISINOPRIL [Suspect]
     Active Substance: LISINOPRIL
     Dosage: 1 DOSAGE FORM, 1 TABLET  (MIX-UP), ORAL, CERTAIN EXPOSURE-LISINOPRIL 5
     Route: 048
  40. LISINOPRIL [Suspect]
     Active Substance: LISINOPRIL
     Dosage: 1 DOSAGE FORM, 1 TABLET  (MIX-UP), ORAL, CERTAIN EXPOSURE-LISINOPRIL 5
     Route: 061
  41. FRESUBIN [Concomitant]
     Active Substance: AMINO ACIDS\DEXTROSE\ELECTROLYTES NOS\SOYBEAN OIL\VITAMINS
     Dosage: UNK
  42. FRESUBIN [Concomitant]
     Active Substance: AMINO ACIDS\DEXTROSE\ELECTROLYTES NOS\SOYBEAN OIL\VITAMINS
     Dosage: UNK
     Route: 065
  43. FRESUBIN [Concomitant]
     Active Substance: AMINO ACIDS\DEXTROSE\ELECTROLYTES NOS\SOYBEAN OIL\VITAMINS
     Dosage: UNK
     Route: 065
  44. FRESUBIN [Concomitant]
     Active Substance: AMINO ACIDS\DEXTROSE\ELECTROLYTES NOS\SOYBEAN OIL\VITAMINS
     Dosage: UNK

REACTIONS (1)
  - Hypotension [Unknown]

NARRATIVE: CASE EVENT DATE: 20251202
